FAERS Safety Report 8381346-1 (Version None)
Quarter: 2012Q2

REPORT INFORMATION
  Report Type: 
  Country: None (occurrence: None)
  Receive Date: 20120523
  Receipt Date: 20120518
  Transmission Date: 20120825
  Serious: Yes (Other)
  Sender: FDA-Public Use
  Company Number: JP-PFIZER INC-2012093173

PATIENT
  Age: 65 Year
  Sex: Male

DRUGS (1)
  1. LYRICA [Suspect]
     Indication: PAIN
     Dosage: 25 MG, 1X/DAY
     Route: 048
     Dates: start: 20120406, end: 20120411

REACTIONS (2)
  - COGNITIVE DISORDER [None]
  - BEHAVIOURAL AND PSYCHIATRIC SYMPTOMS OF DEMENTIA [None]
